FAERS Safety Report 14984730 (Version 1)
Quarter: 2018Q2

REPORT INFORMATION
  Report Type: Spontaneous
  Country: US (occurrence: US)
  Receive Date: 20180518
  Receipt Date: 20180518
  Transmission Date: 20180711
  Serious: Yes (Hospitalization)
  Sender: FDA-Public Use
  Company Number: None

PATIENT
  Age: 79 Year
  Sex: Female
  Weight: 62.1 kg

DRUGS (6)
  1. HCTZ 12.5 MG [Concomitant]
  2. APIXABAN [Suspect]
     Active Substance: APIXABAN
     Indication: ATRIAL FIBRILLATION
     Route: 048
  3. ZOLPIDEM 5 MG [Concomitant]
     Active Substance: ZOLPIDEM\ZOLPIDEM TARTRATE
  4. DILTIAZEM CD 120 MG [Concomitant]
  5. ATORVASTATIN 10 MG [Concomitant]
     Active Substance: ATORVASTATIN
  6. LOSARTAN 50 MG [Concomitant]
     Active Substance: LOSARTAN

REACTIONS (1)
  - Headache [None]

NARRATIVE: CASE EVENT DATE: 20180518
